FAERS Safety Report 21764405 (Version 1)
Quarter: 2022Q4

REPORT INFORMATION
  Report Type: Report from Study
  Country: US (occurrence: US)
  Receive Date: 20221222
  Receipt Date: 20221222
  Transmission Date: 20230112
  Serious: No
  Sender: FDA-Public Use
  Company Number: US-ABBVIE-4196743

PATIENT
  Sex: Female

DRUGS (6)
  1. RINVOQ [Suspect]
     Active Substance: UPADACITINIB
     Indication: Dermatitis atopic
     Route: 048
     Dates: start: 20221013
  2. ZYRTEC ALLGY TAB 10MG [Concomitant]
     Indication: Product used for unknown indication
  3. DUPIXENT 300 MG/2ML PEN (4=2) [Concomitant]
     Indication: Product used for unknown indication
  4. ALBUTEROL POW SULFATE [Concomitant]
     Indication: Dermatitis atopic
     Route: 048
     Dates: start: 20221013
  5. JUNEL FE 24 TAB 1/20 [Concomitant]
     Indication: Product used for unknown indication
  6. MONTELUKAST GRA 4M [Concomitant]
     Indication: Product used for unknown indication

REACTIONS (4)
  - Asthma [Not Recovered/Not Resolved]
  - Abdominal discomfort [Not Recovered/Not Resolved]
  - Nausea [Not Recovered/Not Resolved]
  - Vomiting [Not Recovered/Not Resolved]

NARRATIVE: CASE EVENT DATE: 20220101
